FAERS Safety Report 5729205-4 (Version None)
Quarter: 2008Q2

REPORT INFORMATION
  Report Type: 
  Country: None (occurrence: None)
  Receive Date: 20080506
  Receipt Date: 20080430
  Transmission Date: 20081010
  Serious: Yes (Other)
  Sender: FDA-Public Use
  Company Number: CA-AVENTIS-200812966GDDC

PATIENT
  Age: 26 Year
  Sex: Male

DRUGS (2)
  1. LANTUS [Suspect]
     Route: 058
     Dates: start: 20070101, end: 20080301
  2. HUMALOG [Concomitant]
     Route: 058

REACTIONS (2)
  - INJECTION SITE NECROSIS [None]
  - INJECTION SITE SCAR [None]
